FAERS Safety Report 24551871 (Version 2)
Quarter: 2025Q3

REPORT INFORMATION
  Report Type: Report from Study
  Country: US (occurrence: US)
  Receive Date: 20241026
  Receipt Date: 20250810
  Transmission Date: 20251021
  Serious: Yes (Other)
  Sender: ALEXION PHARMACEUTICALS
  Company Number: US-AstraZeneca-CH-00724390A

PATIENT
  Sex: Female

DRUGS (1)
  1. BUDESONIDE\FORMOTEROL\GLYCOPYRRONIUM [Suspect]
     Active Substance: BUDESONIDE\FORMOTEROL\GLYCOPYRRONIUM

REACTIONS (7)
  - Fatigue [Unknown]
  - Product dose omission issue [Unknown]
  - Depressed mood [Unknown]
  - Cough [Unknown]
  - Dyspnoea [Unknown]
  - Chest discomfort [Unknown]
  - Drug ineffective [Unknown]
